FAERS Safety Report 19611385 (Version 1)
Quarter: 2021Q3

REPORT INFORMATION
  Report Type: Report from Study
  Country: None (occurrence: US)
  Receive Date: 20210727
  Receipt Date: 20210727
  Transmission Date: 20211014
  Serious: Yes (Hospitalization, Other)
  Sender: FDA-Public Use
  Company Number: US-ABBVIE-21K-163-3950012-00

PATIENT
  Age: 72 Year
  Sex: Male
  Weight: 83.08 kg

DRUGS (12)
  1. XANAX [Concomitant]
     Active Substance: ALPRAZOLAM
     Indication: SLEEP DISORDER
  2. NEXIUM [Concomitant]
     Active Substance: ESOMEPRAZOLE MAGNESIUM
     Indication: CHRONIC OBSTRUCTIVE PULMONARY DISEASE
     Dosage: INHALER
  3. DIAZEM [Concomitant]
     Indication: PRODUCT USED FOR UNKNOWN INDICATION
  4. DORZOLAMIDE [Concomitant]
     Active Substance: DORZOLAMIDE
     Indication: PRODUCT USED FOR UNKNOWN INDICATION
  5. HUMIRA [Suspect]
     Active Substance: ADALIMUMAB
     Indication: RHEUMATOID ARTHRITIS
     Route: 058
     Dates: start: 2018
  6. PFIZER?BIONTECH COVID?19 VACCINE [Concomitant]
     Active Substance: TOZINAMERAN
     Route: 030
     Dates: start: 20210408, end: 20210408
  7. LIPITOR [Concomitant]
     Active Substance: ATORVASTATIN CALCIUM
     Indication: BLOOD CHOLESTEROL
  8. PANTOPRAZOLE [Concomitant]
     Active Substance: PANTOPRAZOLE
     Indication: HYPERCHLORHYDRIA
  9. METOPROLOL. [Concomitant]
     Active Substance: METOPROLOL
     Indication: HEART RATE
  10. PROZAC [Concomitant]
     Active Substance: FLUOXETINE HYDROCHLORIDE
     Indication: ANXIETY
  11. GLIPIZIDE. [Concomitant]
     Active Substance: GLIPIZIDE
     Indication: DIABETES MELLITUS
  12. PFIZER?BIONTECH COVID?19 VACCINE [Concomitant]
     Active Substance: TOZINAMERAN
     Indication: COVID-19 IMMUNISATION
     Route: 030
     Dates: start: 20210318, end: 20210318

REACTIONS (6)
  - Hypersensitivity [Recovered/Resolved]
  - Cardiac disorder [Unknown]
  - Haemoglobin decreased [Not Recovered/Not Resolved]
  - Chronic obstructive pulmonary disease [Unknown]
  - Atrial fibrillation [Recovered/Resolved]
  - Internal haemorrhage [Not Recovered/Not Resolved]

NARRATIVE: CASE EVENT DATE: 20181214
